FAERS Safety Report 9434683 (Version 1)
Quarter: 2013Q3

REPORT INFORMATION
  Report Type: Spontaneous
  Country: US (occurrence: None)
  Receive Date: 20130731
  Receipt Date: 20130731
  Transmission Date: 20140515
  Serious: Yes (Other)
  Sender: FDA-Public Use
  Company Number: None

PATIENT
  Age: 68 Year
  Sex: Female
  Weight: 54.43 kg

DRUGS (2)
  1. TRIAMCINOLONE ACETONIDE [Suspect]
     Indication: SINUSITIS
     Dosage: 1 SPRAY 2 TIMES DAILY NASAL
     Route: 045
     Dates: start: 20130708, end: 20130724
  2. TRIAMCINOLONE ACETONIDE [Suspect]
     Indication: MULTIPLE ALLERGIES
     Dosage: 1 SPRAY 2 TIMES DAILY NASAL
     Route: 045
     Dates: start: 20130708, end: 20130724

REACTIONS (10)
  - Dizziness [None]
  - Nausea [None]
  - Choking [None]
  - Vomiting [None]
  - Headache [None]
  - Decreased appetite [None]
  - Dyspnoea [None]
  - Fatigue [None]
  - Uterine spasm [None]
  - Chest pain [None]
